FAERS Safety Report 18057406 (Version 2)
Quarter: 2020Q3

REPORT INFORMATION
  Report Type: Report from Study
  Country: None (occurrence: US)
  Receive Date: 20200723
  Receipt Date: 20200916
  Transmission Date: 20201103
  Serious: Yes (Hospitalization, Other)
  Sender: FDA-Public Use
  Company Number: US-ABBVIE-20K-163-3485022-00

PATIENT
  Age: 62 Year
  Sex: Female
  Weight: 57.2 kg

DRUGS (15)
  1. SYMBICORT [Concomitant]
     Active Substance: BUDESONIDE\FORMOTEROL FUMARATE DIHYDRATE
     Indication: PULMONARY VASCULITIS
     Dosage: 80/4.5 MCG, 2 TIMES DAILY
  2. HUMIRA [Suspect]
     Active Substance: ADALIMUMAB
     Indication: ANKYLOSING SPONDYLITIS
     Dosage: CITRATE FREE
     Route: 058
     Dates: start: 20191211
  3. OSPHENA [Concomitant]
     Active Substance: OSPEMIFENE
     Indication: MENOPAUSE
  4. METHOTREXATE. [Concomitant]
     Active Substance: METHOTREXATE
     Dosage: INCREASED DOE
  5. AMITRIPTYLINE [Concomitant]
     Active Substance: AMITRIPTYLINE
     Indication: INSOMNIA
     Dosage: NIGHTLY
  6. METHOTREXATE. [Concomitant]
     Active Substance: METHOTREXATE
     Dosage: REDUCED DOSE
  7. LEUCOVORIN. [Concomitant]
     Active Substance: LEUCOVORIN
     Indication: HYPERTENSION
  8. DYMISTA [Concomitant]
     Active Substance: AZELASTINE HYDROCHLORIDE\FLUTICASONE PROPIONATE
     Indication: HYPERSENSITIVITY
  9. SYMBICORT [Concomitant]
     Active Substance: BUDESONIDE\FORMOTEROL FUMARATE DIHYDRATE
     Indication: OBSTRUCTIVE AIRWAYS DISORDER
  10. LOSARTAN. [Concomitant]
     Active Substance: LOSARTAN
     Indication: GASTROINTESTINAL DISORDER
  11. METHOTREXATE. [Concomitant]
     Active Substance: METHOTREXATE
     Indication: URTICARIAL VASCULITIS
  12. PLAQUENIL [Concomitant]
     Active Substance: HYDROXYCHLOROQUINE SULFATE
     Indication: URTICARIAL VASCULITIS
  13. AMITRIPTYLINE [Concomitant]
     Active Substance: AMITRIPTYLINE
     Indication: BLADDER SPASM
  14. PATADAY [Concomitant]
     Active Substance: OLOPATADINE HYDROCHLORIDE
     Indication: HYPERSENSITIVITY
  15. XYZAL [Concomitant]
     Active Substance: LEVOCETIRIZINE DIHYDROCHLORIDE
     Indication: HYPERSENSITIVITY

REACTIONS (16)
  - Impaired driving ability [Not Recovered/Not Resolved]
  - Vein disorder [Not Recovered/Not Resolved]
  - Migraine with aura [Recovered/Resolved]
  - Cerebral haemorrhage [Not Recovered/Not Resolved]
  - Vasculitis [Not Recovered/Not Resolved]
  - Dyspepsia [Recovering/Resolving]
  - Ocular hyperaemia [Not Recovered/Not Resolved]
  - Halo vision [Not Recovered/Not Resolved]
  - Injection site papule [Not Recovered/Not Resolved]
  - Fatigue [Not Recovered/Not Resolved]
  - Urticarial vasculitis [Not Recovered/Not Resolved]
  - Feeling hot [Unknown]
  - Cellulitis [Unknown]
  - Injection site pruritus [Not Recovered/Not Resolved]
  - Nervous system disorder [Not Recovered/Not Resolved]
  - Arthralgia [Recovered/Resolved]

NARRATIVE: CASE EVENT DATE: 20200708
